FAERS Safety Report 6024907-7 (Version None)
Quarter: 2008Q4

REPORT INFORMATION
  Report Type: 
  Country: None (occurrence: None)
  Receive Date: 20081231
  Receipt Date: 20081223
  Transmission Date: 20090506
  Serious: Yes (Disabling)
  Sender: FDA-Public Use
  Company Number: TH-PFIZER INC-2008158776

PATIENT

DRUGS (1)
  1. DILANTIN [Suspect]
     Indication: CONVULSION
     Route: 042

REACTIONS (1)
  - GANGRENE [None]
